FAERS Safety Report 7026406-2 (Version None)
Quarter: 2010Q4

REPORT INFORMATION
  Report Type: 
  Country: None (occurrence: None)
  Receive Date: 20101004
  Receipt Date: 20100922
  Transmission Date: 20110411
  Serious: Yes (Other)
  Sender: FDA-Public Use
  Company Number: CA-JNJFOC-20100908123

PATIENT
  Sex: Female
  Weight: 56 kg

DRUGS (4)
  1. REMICADE [Suspect]
     Indication: ARTHRALGIA
     Route: 042
  2. REMICADE [Suspect]
     Indication: CROHN'S DISEASE
     Route: 042
  3. HYDROCORTISONE [Concomitant]
     Indication: PREMEDICATION
     Route: 042
  4. PLAQUENIL [Concomitant]
     Indication: ARTHRALGIA

REACTIONS (5)
  - ARTHRALGIA [None]
  - CHEST PAIN [None]
  - LIP SWELLING [None]
  - MUSCULOSKELETAL STIFFNESS [None]
  - URTICARIA [None]
